FAERS Safety Report 9014526 (Version 3)
Quarter: 2013Q3

REPORT INFORMATION
  Report Type: Report from Study
  Country: CA (occurrence: CA)
  Receive Date: 20130115
  Receipt Date: 20130820
  Transmission Date: 20140515
  Serious: Yes (Hospitalization)
  Sender: FDA-Public Use
  Company Number: CA-JNJFOC-20130104267

PATIENT
  Age: 13 Year
  Sex: Female
  Weight: 41 kg

DRUGS (7)
  1. REMICADE [Suspect]
     Indication: CROHN^S DISEASE
     Route: 042
     Dates: start: 20120914
  2. REMICADE [Suspect]
     Indication: CROHN^S DISEASE
     Route: 042
     Dates: start: 20130105, end: 20130105
  3. GRAVOL [Concomitant]
     Indication: PREMEDICATION
     Route: 042
     Dates: start: 201301
  4. HYDROCORTISONE [Concomitant]
     Indication: PREMEDICATION
     Route: 042
     Dates: start: 201301
  5. TYLENOL [Concomitant]
     Indication: PREMEDICATION
     Route: 048
     Dates: start: 201301
  6. LANSOPRAZOLE [Concomitant]
     Indication: GASTROOESOPHAGEAL REFLUX DISEASE
     Route: 065
  7. HUMAN GROWTH HORMONE [Concomitant]
     Indication: CHONDRODYSTROPHY
     Route: 065
     Dates: start: 20130131

REACTIONS (8)
  - Dyspnoea [Recovering/Resolving]
  - Anxiety [Recovered/Resolved]
  - Tachycardia [Recovered/Resolved]
  - Respiratory rate increased [Recovering/Resolving]
  - Infusion related reaction [Recovering/Resolving]
  - Nausea [Recovering/Resolving]
  - Flushing [Recovering/Resolving]
  - Hyperhidrosis [Recovered/Resolved]
